FAERS Safety Report 13076314 (Version 2)
Quarter: 2017Q4

REPORT INFORMATION
  Report Type: Spontaneous
  Country: US (occurrence: US)
  Receive Date: 20161230
  Receipt Date: 20171207
  Transmission Date: 20180320
  Serious: Yes (Other)
  Sender: FDA-Public Use
  Company Number: US-BRISTOL-MYERS SQUIBB COMPANY-BMS-2016-110235

PATIENT
  Sex: Female

DRUGS (2)
  1. ELIQUIS [Suspect]
     Active Substance: APIXABAN
     Indication: CEREBROVASCULAR ACCIDENT PROPHYLAXIS
     Dosage: 5 MG, BID
     Route: 048
     Dates: start: 201701
  2. BABY ASPIRIN [Concomitant]
     Active Substance: ASPIRIN
     Indication: PRODUCT USED FOR UNKNOWN INDICATION
     Dosage: 31 MG, UNK
     Route: 065

REACTIONS (3)
  - Tooth disorder [Unknown]
  - Intracranial aneurysm [Unknown]
  - Surgery [Unknown]

NARRATIVE: CASE EVENT DATE: 2017
